FAERS Safety Report 4365455-X (Version None)
Quarter: 2004Q2

REPORT INFORMATION
  Report Type: 
  Country: None (occurrence: None)
  Receive Date: 20040520
  Receipt Date: 20040510
  Transmission Date: 20050107
  Serious: Yes (Hospitalization)
  Sender: FDA-Public Use
  Company Number: NSADSS2003008505

PATIENT
  Age: 59 Year
  Sex: Female
  Weight: 68.0396 kg

DRUGS (21)
  1. REMICADE [Suspect]
     Indication: RHEUMATOID ARTHRITIS
     Dosage: 5 MG, 1 IN 1 AS NECESSARY, INTRAVENOUS DRIP
     Route: 041
     Dates: start: 20021113, end: 20021113
  2. METHOTREXATE SODIUM [Concomitant]
  3. AZULFIDINE [Concomitant]
  4. PREDNISONE [Concomitant]
  5. FOLIC ACID [Concomitant]
  6. NORVASC [Concomitant]
  7. PRINIVIL [Concomitant]
  8. ACUTROL (MAXITROL) [Concomitant]
  9. ATENOLOL [Concomitant]
  10. GLUCOVANCE (GLIBOMET) [Concomitant]
  11. VITAMIN E [Concomitant]
  12. ADVIL [Concomitant]
  13. MULTI-VITAMINS [Concomitant]
  14. CALCIUM [Concomitant]
  15. FEMHRT (ANOVLAR) [Concomitant]
  16. REMICADE [Suspect]
     Dosage: 5MG/KG, 1 IN 1 DAY, INTRAVENOUS DRIP
     Route: 041
     Dates: start: 20020905
  17. REMICADE [Suspect]
     Dosage: 5 MG/KG, 1 IN 1 DAY, INTRAVENOUS DRIP
     Route: 041
     Dates: start: 20020711
  18. REMICADE [Suspect]
     Dosage: 5 MG/KG, 1 IN 1 DAY, INTRAVENOUS DRIP
     Route: 041
     Dates: start: 20020516
  19. REMICADE [Suspect]
     Dosage: 3 MG/KG, 1 IN 1 DAY, INTRAVENOUS DRIP
     Route: 041
     Dates: start: 20020321
  20. REMICADE [Suspect]
     Dosage: 3 MG/KG, 1 IN 1 DAY, INTRAVENOUS DRIP
     Route: 041
     Dates: start: 20020226
  21. REMICADE [Suspect]
     Dosage: 3 MG/KG, 1 IN 1 DAY, INTRAVENOUS DRIP
     Route: 041
     Dates: start: 20020124

REACTIONS (3)
  - CYSTITIS [None]
  - CYTOMEGALOVIRUS INFECTION [None]
  - PNEUMOCYSTIS CARINII PNEUMONIA [None]
